FAERS Safety Report 13485460 (Version 1)
Quarter: 2017Q2

REPORT INFORMATION
  Report Type: Spontaneous
  Country: DK (occurrence: GB)
  Receive Date: 20170426
  Receipt Date: 20170426
  Transmission Date: 20170830
  Serious: Yes (Hospitalization)
  Sender: FDA-Public Use
  Company Number: DK-EDENBRIDGE PHARMACEUTICALS, LLC-GB-2017EDE000018

PATIENT
  Age: 32 Year
  Sex: Female

DRUGS (2)
  1. PREDNISOLONE SODIUM PHOSPHATE. [Suspect]
     Active Substance: PREDNISOLONE SODIUM PHOSPHATE
     Indication: IMMUNOSUPPRESSION
     Dosage: 10 MG, QD
  2. CLOMIFENE [Concomitant]
     Active Substance: CLOMIPHENE
     Indication: OVULATION INDUCTION

REACTIONS (1)
  - Coccidioidomycosis [Not Recovered/Not Resolved]

NARRATIVE: CASE EVENT DATE: 2015
